FAERS Safety Report 8629830 (Version 2)
Quarter: 2012Q4

REPORT INFORMATION
  Report Type: Spontaneous
  Country: CA (occurrence: None)
  Receive Date: 20120608
  Receipt Date: 20120921
  Transmission Date: 20130627
  Serious: Yes (Other)
  Sender: FDA-Public Use
  Company Number: 2012-002025

PATIENT
  Age: 37 Year
  Sex: Female
  Weight: 131 kg

DRUGS (5)
  1. ACTONEL [Suspect]
     Route: 048
  2. ACCURETIC [Concomitant]
  3. CALCIUM + VITAMIN D /01483701/ (CALCIUM, COLECALCIFEROL) [Concomitant]
  4. COD-LIVER OIL [Concomitant]
  5. NORVASC [Concomitant]

REACTIONS (4)
  - Hypocalcaemia [None]
  - Accidental overdose [None]
  - Inappropriate schedule of drug administration [None]
  - Blood phosphorus decreased [None]
